FAERS Safety Report 8015955-6 (Version None)
Quarter: 2011Q4

REPORT INFORMATION
  Report Type: 
  Country: None (occurrence: None)
  Receive Date: 20111228
  Receipt Date: 20111228
  Transmission Date: 20120403
  Serious: Yes (Other)
  Sender: FDA-Public Use
  Company Number: None

PATIENT
  Sex: Male
  Weight: 86.4 kg

DRUGS (1)
  1. KEPPRA [Suspect]
     Indication: CONVULSION
     Dosage: KEPPRA 100 MG BID PO
     Route: 048
     Dates: start: 20110130, end: 20111201

REACTIONS (2)
  - BALANITIS [None]
  - RASH [None]
